FAERS Safety Report 12530136 (Version 1)
Quarter: 2016Q3

REPORT INFORMATION
  Report Type: Spontaneous
  Country: US (occurrence: US)
  Receive Date: 20160706
  Receipt Date: 20160706
  Transmission Date: 20161109
  Serious: Yes (Other)
  Sender: FDA-Public Use
  Company Number: US-MEDA-2016060112

PATIENT
  Sex: Female

DRUGS (5)
  1. DYMISTA [Suspect]
     Active Substance: AZELASTINE HYDROCHLORIDE\FLUTICASONE PROPIONATE
     Dates: start: 201601, end: 20160624
  2. FLUTICASONE [Suspect]
     Active Substance: FLUTICASONE\FLUTICASONE PROPIONATE
     Dates: start: 2013
  3. DYMISTA [Suspect]
     Active Substance: AZELASTINE HYDROCHLORIDE\FLUTICASONE PROPIONATE
     Dates: start: 2012, end: 2013
  4. DYMISTA [Suspect]
     Active Substance: AZELASTINE HYDROCHLORIDE\FLUTICASONE PROPIONATE
     Dates: start: 20160629
  5. AZELASTINE HYDROCHLORIDE. [Suspect]
     Active Substance: AZELASTINE HYDROCHLORIDE
     Dates: start: 2013

REACTIONS (10)
  - Wrong technique in product usage process [Recovered/Resolved]
  - Nasal crusting [Not Recovered/Not Resolved]
  - Nasal dryness [Not Recovered/Not Resolved]
  - Local swelling [Not Recovered/Not Resolved]
  - Meniscus injury [Recovered/Resolved]
  - Rotator cuff repair [Recovered/Resolved]
  - Nasal congestion [Not Recovered/Not Resolved]
  - Gallbladder operation [Recovered/Resolved]
  - Carpal tunnel decompression [Recovered/Resolved]
  - Nasal discomfort [Not Recovered/Not Resolved]

NARRATIVE: CASE EVENT DATE: 2016
